FAERS Safety Report 26092006 (Version 1)
Quarter: 2025Q4

REPORT INFORMATION
  Report Type: Spontaneous
  Country: US (occurrence: None)
  Receive Date: 20251126
  Receipt Date: 20251126
  Transmission Date: 20260117
  Serious: Yes (Hospitalization)
  Sender: FDA-CTU
  Company Number: None

PATIENT
  Age: 66 Year
  Sex: Female
  Weight: 88.5 kg

DRUGS (2)
  1. DARATUMUMAB\HYALURONIDASE-FIHJ [Suspect]
     Active Substance: DARATUMUMAB\HYALURONIDASE-FIHJ
     Dosage: OTHER FREQUENCY : END OF TREATMENT FOR THIS DRUG COMPLETED 02-06-25;?
     Dates: end: 20250206
  2. LENALIDOMIDE [Suspect]
     Active Substance: LENALIDOMIDE
     Dates: end: 20250227

REACTIONS (1)
  - Clear cell renal cell carcinoma [None]

NARRATIVE: CASE EVENT DATE: 20250917
